FAERS Safety Report 17326094 (Version 1)
Quarter: 2020Q1

REPORT INFORMATION
  Report Type: Spontaneous
  Country: US (occurrence: US)
  Receive Date: 20200127
  Receipt Date: 20200127
  Transmission Date: 20200409
  Serious: No
  Sender: FDA-Public Use
  Company Number: US-REGENERON PHARMACEUTICALS, INC.-2019-14325

PATIENT

DRUGS (3)
  1. EYLEA [Suspect]
     Active Substance: AFLIBERCEPT
     Indication: MACULAR DEGENERATION
     Dosage: RIGHT EYE, EVERY 4 MONTHS, THEN 3 MONTHS, THEN 2 MONTHS, EVERY 6 WEEKS AND THEN EVERY 5 WEEKS
     Route: 031
     Dates: start: 2017
  2. EYLEA [Suspect]
     Active Substance: AFLIBERCEPT
     Dosage: LAST DOSE
     Route: 031
     Dates: start: 20190122, end: 20190122
  3. EYLEA [Suspect]
     Active Substance: AFLIBERCEPT
     Dosage: LEFT EYE, EVERY 4 MONTHS, THEN 3 MONTHS, THEN 2 MONTHS, EVERY 6 WEEKS AND THEN EVERY 5 WEEKS
     Route: 031
     Dates: start: 2018

REACTIONS (3)
  - Bradyphrenia [Unknown]
  - Disease progression [Unknown]
  - Drug ineffective [Unknown]
